FAERS Safety Report 13457268 (Version 1)
Quarter: 2017Q2

REPORT INFORMATION
  Report Type: Report from Study
  Country: CN (occurrence: CN)
  Receive Date: 20170419
  Receipt Date: 20170419
  Transmission Date: 20170830
  Serious: Yes (Death)
  Sender: FDA-Public Use
  Company Number: CN-ROCHE-1766282

PATIENT
  Sex: Male
  Weight: 69 kg

DRUGS (1)
  1. AVASTIN [Suspect]
     Active Substance: BEVACIZUMAB
     Indication: RECTAL CANCER
     Route: 041
     Dates: start: 20160415, end: 20170224

REACTIONS (5)
  - Diarrhoea [Recovering/Resolving]
  - Gait disturbance [Unknown]
  - Pain [Unknown]
  - Condition aggravated [Fatal]
  - Ill-defined disorder [Fatal]
